FAERS Safety Report 11556735 (Version 1)
Quarter: 2015Q3

REPORT INFORMATION
  Report Type: Report from Study
  Country: CA (occurrence: CA)
  Receive Date: 20150925
  Receipt Date: 20150925
  Transmission Date: 20151125
  Serious: Yes (Hospitalization, Other)
  Sender: FDA-Public Use
  Company Number: CA-PFIZER INC-2015310252

PATIENT
  Age: 46 Year
  Sex: Male
  Weight: 91.8 kg

DRUGS (2)
  1. SUNITINIB MALATE. [Suspect]
     Active Substance: SUNITINIB MALATE
     Indication: ALVEOLAR SOFT PART SARCOMA
     Dosage: 37.5 MG QAM
     Route: 048
     Dates: start: 20150217
  2. SUNITINIB MALATE. [Suspect]
     Active Substance: SUNITINIB MALATE
     Dosage: 25 MG, DAILY
     Route: 048
     Dates: start: 20150521, end: 20150611

REACTIONS (3)
  - Anal abscess [Recovered/Resolved]
  - Rectal haemorrhage [Recovering/Resolving]
  - Proctalgia [Recovering/Resolving]

NARRATIVE: CASE EVENT DATE: 20150609
